FAERS Safety Report 18932549 (Version 1)
Quarter: 2021Q1

REPORT INFORMATION
  Report Type: Spontaneous
  Country: FR (occurrence: FR)
  Receive Date: 20210224
  Receipt Date: 20210224
  Transmission Date: 20210420
  Serious: Yes (Life-Threatening, Hospitalization)
  Sender: FDA-Public Use
  Company Number: FR-TEVA-2021-FR-1881582

PATIENT
  Age: 77 Year
  Sex: Male
  Weight: 72.3 kg

DRUGS (5)
  1. TERALITHE [Suspect]
     Active Substance: LITHIUM CARBONATE
     Indication: POISONING DELIBERATE
     Dosage: 4000MILLIGRAM
     Route: 048
     Dates: start: 20210125, end: 20210125
  2. ALPRAZOLAM. [Suspect]
     Active Substance: ALPRAZOLAM
     Indication: POISONING DELIBERATE
     Dosage: 17.5MILLIGRAM
     Route: 048
     Dates: start: 20210125, end: 20210125
  3. MELATONINE [Suspect]
     Active Substance: MELATONIN
     Indication: POISONING DELIBERATE
     Dosage: 120MILLIGRAM
     Route: 048
     Dates: start: 20210125, end: 20210125
  4. LAMICTAL [Suspect]
     Active Substance: LAMOTRIGINE
     Indication: POISONING DELIBERATE
     Dosage: 2000MILLIGRAM
     Route: 048
     Dates: start: 20210125, end: 20210125
  5. FLUOXETINE (CHLORHYDRATE DE) [Suspect]
     Active Substance: FLUOXETINE HYDROCHLORIDE
     Indication: POISONING DELIBERATE
     Dosage: 420MILLIGRAM
     Route: 048
     Dates: start: 20210125, end: 20210125

REACTIONS (3)
  - Arrhythmia supraventricular [Recovering/Resolving]
  - Coma [Recovered/Resolved]
  - Antipsychotic drug level increased [Recovered/Resolved]

NARRATIVE: CASE EVENT DATE: 20210125
